FAERS Safety Report 13142443 (Version 1)
Quarter: 2017Q1

REPORT INFORMATION
  Report Type: Spontaneous
  Country: MY (occurrence: None)
  Receive Date: 20170123
  Receipt Date: 20170123
  Transmission Date: 20170428
  Serious: Yes (Hospitalization, Other)
  Sender: FDA-Public Use
  Company Number: MY2017K0187LIT

PATIENT
  Age: 56 Year
  Sex: Female

DRUGS (2)
  1. OLANZAPINE WORLD (OLANZAPINE) UNKNOWN [Suspect]
     Active Substance: OLANZAPINE
     Dosage: ONCE AT NIGHT
  2. ENALAPRIL WORLD (ENALAPRIL) UNKNOWN [Suspect]
     Active Substance: ENALAPRIL

REACTIONS (1)
  - Inappropriate antidiuretic hormone secretion [None]
